FAERS Safety Report 9916431 (Version 2)
Quarter: 2014Q1

REPORT INFORMATION
  Report Type: Spontaneous
  Country: US (occurrence: US)
  Receive Date: 20140221
  Receipt Date: 20140227
  Transmission Date: 20141002
  Serious: No
  Sender: FDA-Public Use
  Company Number: US-BAYER-2014-025568

PATIENT
  Age: 37 Year
  Sex: Male

DRUGS (1)
  1. LEVITRA [Suspect]
     Indication: ERECTILE DYSFUNCTION
     Dosage: 1 DAILY AS NEEDED, 3 SINCE FEB. 15, 2014, USUALLY TWICE A WEEK
     Route: 048
     Dates: start: 20140215, end: 20140217

REACTIONS (1)
  - Drug ineffective [Not Recovered/Not Resolved]
